FAERS Safety Report 9569919 (Version 1)
Quarter: 2013Q3

REPORT INFORMATION
  Report Type: Spontaneous
  Country: US (occurrence: US)
  Receive Date: 20130930
  Receipt Date: 20130930
  Transmission Date: 20140515
  Serious: No
  Sender: FDA-Public Use
  Company Number: US-AMGEN-USASP2013065852

PATIENT
  Age: 33 Year
  Sex: Female
  Weight: 62.13 kg

DRUGS (1)
  1. ENBREL [Suspect]
     Indication: PSORIASIS
     Dosage: 50 MG, 2 TIMES/WK (AT LEAST 72 HOURS APART))
     Route: 058
     Dates: start: 20130101

REACTIONS (1)
  - Drug ineffective [Unknown]
